FAERS Safety Report 4655063-5 (Version None)
Quarter: 2005Q2

REPORT INFORMATION
  Report Type: 
  Country: None (occurrence: None)
  Receive Date: 20050504
  Receipt Date: 20050421
  Transmission Date: 20051028
  Serious: Yes (Other)
  Sender: FDA-Public Use
  Company Number: 2005040261

PATIENT
  Age: 67 Year
  Sex: Female

DRUGS (4)
  1. BEXTRA [Suspect]
     Indication: SPINAL COLUMN STENOSIS
     Dosage: 20 MG (20 MG, 1 IN 1 D) ORAL
     Route: 048
     Dates: start: 20041018, end: 20050207
  2. PANTOPRAZOLE SODIUM [Concomitant]
  3. ANTI-DIABETICS [Concomitant]
  4. DOXAZOSIN MESYLATE [Concomitant]

REACTIONS (4)
  - ERYTHEMA [None]
  - IMPAIRED HEALING [None]
  - SKIN ULCER [None]
  - VASCULITIS [None]
